FAERS Safety Report 7995640-7 (Version None)
Quarter: 2011Q4

REPORT INFORMATION
  Report Type: 
  Country: None (occurrence: None)
  Receive Date: 20111220
  Receipt Date: 20111214
  Transmission Date: 20120403
  Serious: Yes (Other)
  Sender: FDA-Public Use
  Company Number: DE-SANOFI-AVENTIS-2011SA082144

PATIENT
  Age: 72 Year
  Sex: Female

DRUGS (5)
  1. MULTAQ [Suspect]
     Indication: CARDIAC ABLATION
     Route: 048
  2. METOPROLOL TARTRATE [Concomitant]
     Route: 065
  3. SIMVASTATIN [Concomitant]
     Route: 065
  4. MARCUMAR [Concomitant]
     Route: 065
  5. ATACAND [Concomitant]
     Route: 065

REACTIONS (1)
  - VENTRICULAR ARRHYTHMIA [None]
